FAERS Safety Report 16697227 (Version 1)
Quarter: 2019Q4

REPORT INFORMATION
  Report Type: Spontaneous
  Country: US (occurrence: US)
  Receive Date: 20190812
  Receipt Date: 20190812
  Transmission Date: 20200122
  Serious: Yes (Other)
  Sender: FDA-Public Use
  Company Number: None

PATIENT
  Age: 56 Year
  Sex: Female
  Weight: 72 kg

DRUGS (7)
  1. ERIVEDGE [Concomitant]
     Active Substance: VISMODEGIB
  2. PROAIR HFA [Concomitant]
     Active Substance: ALBUTEROL SULFATE
  3. BENADRYL [Concomitant]
     Active Substance: DIPHENHYDRAMINE HYDROCHLORIDE
  4. EXCEDRIN MIGAINE [Concomitant]
  5. ERIVEDGE [Suspect]
     Active Substance: VISMODEGIB
     Indication: BASAL CELL CARCINOMA
     Dosage: ?          QUANTITY:28 CAPSULE(S);?
     Route: 048
  6. MELATONIN [Concomitant]
     Active Substance: MELATONIN
  7. TUSSIN LIQUID [Concomitant]

REACTIONS (4)
  - Diarrhoea [None]
  - Decreased appetite [None]
  - Muscle spasms [None]
  - Alopecia [None]

NARRATIVE: CASE EVENT DATE: 20190310
